FAERS Safety Report 4558607-7 (Version None)
Quarter: 2005Q1

REPORT INFORMATION
  Report Type: 
  Country: None (occurrence: None)
  Receive Date: 20050121
  Receipt Date: 20050113
  Transmission Date: 20050727
  Serious: Yes (Hospitalization)
  Sender: FDA-Public Use
  Company Number: DK-ROCHE-392668

PATIENT
  Age: 34 Year
  Sex: Female

DRUGS (2)
  1. ROACCUTAN [Suspect]
     Indication: HIDRADENITIS
     Route: 048
     Dates: start: 19900615, end: 19900615
  2. CONTRACEPTIVE PILL [Suspect]
     Indication: CONTRACEPTION
     Route: 048
     Dates: end: 19900615

REACTIONS (1)
  - INTRACARDIAC THROMBUS [None]
